FAERS Safety Report 5788376-4 (Version None)
Quarter: 2008Q2

REPORT INFORMATION
  Report Type: 
  Country: None (occurrence: None)
  Receive Date: 20080625
  Receipt Date: 20080613
  Transmission Date: 20081010
  Serious: Yes (Other)
  Sender: FDA-Public Use
  Company Number: US-PFIZER INC-2008050769

PATIENT
  Sex: Male
  Weight: 113.4 kg

DRUGS (6)
  1. LYRICA [Suspect]
     Indication: HYPOAESTHESIA
  2. IRON [Suspect]
  3. TYLENOL [Concomitant]
  4. FUROSEMIDE [Concomitant]
  5. ALL OTHER THERAPEUTIC PRODUCTS [Concomitant]
  6. ZYPREXA [Concomitant]

REACTIONS (12)
  - AORTIC OCCLUSION [None]
  - BALANCE DISORDER [None]
  - DISTURBANCE IN ATTENTION [None]
  - DRUG INEFFECTIVE [None]
  - FAECES DISCOLOURED [None]
  - HYPOAESTHESIA [None]
  - LOSS OF CONTROL OF LEGS [None]
  - MEMORY IMPAIRMENT [None]
  - POSTURE ABNORMAL [None]
  - SPEECH DISORDER [None]
  - SUDDEN ONSET OF SLEEP [None]
  - WALKING AID USER [None]
